FAERS Safety Report 4334048-2 (Version None)
Quarter: 2004Q1

REPORT INFORMATION
  Report Type: 
  Country: None (occurrence: None)
  Receive Date: 20040329
  Receipt Date: 20031222
  Transmission Date: 20041129
  Serious: No
  Sender: FDA-Public Use
  Company Number: 03P-163-0245437-00

PATIENT
  Age: 50 Year
  Sex: Female

DRUGS (7)
  1. HUMIRA [Suspect]
     Indication: RHEUMATOID ARTHRITIS
     Dosage: 40 MG, 1 IN 2 WK, SUBCUTANEOUS
     Route: 058
     Dates: start: 20030801
  2. METHOTREXATE [Concomitant]
  3. PREDNISONE [Concomitant]
  4. BUCINDOLOL HYDROCHLORIDE [Concomitant]
  5. VICODIN [Concomitant]
  6. LANSOPRAZOLE [Concomitant]
  7. GERITOL [Concomitant]

REACTIONS (2)
  - NASOPHARYNGITIS [None]
  - PYREXIA [None]
